FAERS Safety Report 8876289 (Version 1)
Quarter: 2012Q4

REPORT INFORMATION
  Report Type: 
  Country: US (occurrence: US)
  Receive Date: 20121031
  Receipt Date: 20121031
  Transmission Date: 20130627
  Serious: No
  Sender: FDA-Public Use
  Company Number: US-BAYER-2012-113170

PATIENT
  Age: 21 Year
  Sex: Female

DRUGS (1)
  1. MIRENA [Suspect]
     Dosage: 20 ?g, UNK
     Route: 015
     Dates: start: 20121017, end: 20121025

REACTIONS (2)
  - Device expulsion [None]
  - Abdominal pain lower [None]
